FAERS Safety Report 15394952 (Version 1)
Quarter: 2018Q3

REPORT INFORMATION
  Report Type: Spontaneous
  Country: US (occurrence: US)
  Receive Date: 20180911
  Receipt Date: 20180911
  Transmission Date: 20181010
  Serious: Yes (Other)
  Sender: FDA-Public Use
  Company Number: None

PATIENT
  Age: 53 Year
  Sex: Female

DRUGS (5)
  1. METFORMIN [Concomitant]
     Active Substance: METFORMIN HYDROCHLORIDE
     Dates: start: 20180410
  2. JANUVIA [Concomitant]
     Active Substance: SITAGLIPTIN PHOSPHATE
     Dates: start: 20180410
  3. LIPITOR [Concomitant]
     Active Substance: ATORVASTATIN CALCIUM
     Dates: start: 20180410
  4. REBIF [Suspect]
     Active Substance: INTERFERON BETA-1A
     Indication: RESPIRATORY TRACT INFECTION
     Route: 058
     Dates: start: 20180131
  5. CELEBREX [Concomitant]
     Active Substance: CELECOXIB
     Dates: start: 20180910

REACTIONS (4)
  - Seizure [None]
  - Neck surgery [None]
  - Hypoaesthesia [None]
  - Gait disturbance [None]
